FAERS Safety Report 4507494-1 (Version None)
Quarter: 2004Q4

REPORT INFORMATION
  Report Type: 
  Country: None (occurrence: None)
  Receive Date: 20041123
  Receipt Date: 20041112
  Transmission Date: 20050328
  Serious: Yes (Other)
  Sender: FDA-Public Use
  Company Number: US-NOVOPROD-240489

PATIENT
  Age: 66 Year
  Sex: Male

DRUGS (16)
  1. PRANDIN [Suspect]
     Indication: INSULIN-REQUIRING TYPE II DIABETES MELLITUS
     Dosage: 5 MG, TID
     Route: 048
  2. LOPID [Concomitant]
     Indication: BLOOD CHOLESTEROL INCREASED
     Route: 048
  3. HYZAAR [Concomitant]
     Indication: HYPERTENSION
     Route: 048
  4. INDERAL [Concomitant]
     Indication: HYPERTENSION
     Route: 048
  5. DEMADEX [Concomitant]
     Indication: DIURETIC THERAPY
     Route: 048
  6. NIACIN [Concomitant]
     Indication: BLOOD CHOLESTEROL INCREASED
     Route: 048
  7. GLUCOPHAGE [Concomitant]
     Indication: INSULIN-REQUIRING TYPE II DIABETES MELLITUS
     Route: 048
  8. ALLEGRA-D                          /01367401/ [Concomitant]
     Indication: HYPERSENSITIVITY
  9. PAXIL [Concomitant]
     Indication: DEPRESSION
     Route: 048
  10. LANTUS [Concomitant]
     Indication: INSULIN-REQUIRING TYPE II DIABETES MELLITUS
     Route: 058
  11. PRAVACHOL [Concomitant]
     Indication: BLOOD CHOLESTEROL INCREASED
     Route: 048
  12. K-DUR 10 [Concomitant]
     Indication: ELECTROLYTE SUBSTITUTION THERAPY
     Route: 048
  13. SELENIUM TRACE METAL ADDITIVE [Concomitant]
     Indication: VITAMIN SUPPLEMENTATION
     Route: 048
  14. ASPIRIN [Concomitant]
     Indication: PROPHYLAXIS
     Route: 048
  15. XANAX [Concomitant]
     Indication: ANXIETY
     Route: 048
  16. HUMALOG [Concomitant]
     Indication: INSULIN-REQUIRING TYPE II DIABETES MELLITUS
     Dosage: UNK, UNK

REACTIONS (3)
  - BLOOD GLUCOSE INCREASED [None]
  - LOSS OF CONSCIOUSNESS [None]
  - PROSTATE CANCER RECURRENT [None]
